FAERS Safety Report 4609308-8 (Version None)
Quarter: 2005Q1

REPORT INFORMATION
  Report Type: 
  Country: None (occurrence: None)
  Receive Date: 20050314
  Receipt Date: 20050228
  Transmission Date: 20050727
  Serious: Yes (Other)
  Sender: FDA-Public Use
  Company Number: 2005042484

PATIENT
  Age: 67 Year
  Sex: Male

DRUGS (1)
  1. VALDECOXIB [Suspect]
     Indication: ARTHRALGIA
     Dosage: 20 MG (20 MG, 1 IN 1 D)

REACTIONS (1)
  - DERMATITIS CONTACT [None]
